FAERS Safety Report 22144306 (Version 3)
Quarter: 2023Q4

REPORT INFORMATION
  Report Type: Spontaneous
  Country: JP (occurrence: JP)
  Receive Date: 20230328
  Receipt Date: 20231228
  Transmission Date: 20240110
  Serious: Yes (Life-Threatening, Hospitalization, Other)
  Sender: FDA-Public Use
  Company Number: JP-SA-2023SA094589

PATIENT
  Age: 81 Year
  Sex: Male
  Weight: 45 kg

DRUGS (3)
  1. FABRAZYME [Suspect]
     Active Substance: AGALSIDASE BETA
     Indication: Fabry^s disease
     Dosage: DAILY DOSE: 45 MG, QOW
     Route: 041
     Dates: start: 20160229, end: 202303
  2. FABRAZYME [Concomitant]
     Active Substance: AGALSIDASE BETA
     Indication: Product used for unknown indication
     Dosage: UNK
     Route: 041
     Dates: end: 202303
  3. FABRAZYME [Concomitant]
     Active Substance: AGALSIDASE BETA
     Dosage: UNK
     Route: 041
     Dates: end: 202303

REACTIONS (2)
  - Melaena [Unknown]
  - Spinal compression fracture [Recovered/Resolved]

NARRATIVE: CASE EVENT DATE: 20230313
